FAERS Safety Report 15518642 (Version 2)
Quarter: 2019Q1

REPORT INFORMATION
  Report Type: Report from Study
  Country: US (occurrence: US)
  Receive Date: 20181017
  Receipt Date: 20190117
  Transmission Date: 20190417
  Serious: Yes (Other)
  Sender: FDA-Public Use
  Company Number: PHEH2018US043226

PATIENT
  Age: 58 Year
  Sex: Female

DRUGS (2)
  1. COSENTYX [Suspect]
     Active Substance: SECUKINUMAB
     Indication: PSORIATIC ARTHROPATHY
     Dosage: 300 MG, QMO
     Route: 058
     Dates: start: 201806
  2. COSENTYX [Suspect]
     Active Substance: SECUKINUMAB
     Indication: PSORIASIS

REACTIONS (4)
  - Psoriatic arthropathy [Not Recovered/Not Resolved]
  - Incision site erythema [Unknown]
  - Incision site abscess [Unknown]
  - Incision site swelling [Unknown]

NARRATIVE: CASE EVENT DATE: 201809
